FAERS Safety Report 4503668-4 (Version None)
Quarter: 2004Q4

REPORT INFORMATION
  Report Type: 
  Country: None (occurrence: None)
  Receive Date: 20041115
  Receipt Date: 20041027
  Transmission Date: 20050328
  Serious: Yes (Other)
  Sender: FDA-Public Use
  Company Number: 2004-BP-10832BP

PATIENT
  Age: 11 Day

DRUGS (1)
  1. VIRAMUNE [Suspect]
     Indication: PROPHYLAXIS AGAINST HIV INFECTION
     Dosage: 0.6 ML (0.6 ML, ONCE) PO
     Route: 048
     Dates: start: 20020819, end: 20020819

REACTIONS (5)
  - ABDOMINAL DISCOMFORT [None]
  - DRUG EXPOSURE DURING PREGNANCY [None]
  - NEONATAL DISORDER [None]
  - OPHTHALMIA NEONATORUM [None]
  - SEPSIS NEONATAL [None]
